FAERS Safety Report 17286834 (Version 1)
Quarter: 2020Q1

REPORT INFORMATION
  Report Type: Spontaneous
  Country: CA (occurrence: CA)
  Receive Date: 20200119
  Receipt Date: 20200119
  Transmission Date: 20200409
  Serious: Yes (Hospitalization)
  Sender: FDA-Public Use
  Company Number: CA-TEVA-2020-CA-1169102

PATIENT
  Age: 61 Year
  Sex: Male

DRUGS (1)
  1. SALBUTAMOL [Suspect]
     Active Substance: ALBUTEROL
     Indication: PRODUCT USED FOR UNKNOWN INDICATION
     Route: 065

REACTIONS (8)
  - Asthma [Unknown]
  - Fatigue [Unknown]
  - Blood pressure abnormal [Unknown]
  - Nasopharyngitis [Unknown]
  - Feeding disorder [Unknown]
  - Tachycardia [Unknown]
  - Asthenia [Unknown]
  - Body mass index increased [Unknown]
